FAERS Safety Report 8922334 (Version 1)
Quarter: 2012Q4

REPORT INFORMATION
  Report Type: 
  Country: US (occurrence: US)
  Receive Date: 20121123
  Receipt Date: 20121123
  Transmission Date: 20130627
  Serious: No
  Sender: FDA-Public Use
  Company Number: US-BAYER-2012-120652

PATIENT
  Age: 3 Year
  Sex: Female
  Weight: 14.51 kg

DRUGS (1)
  1. ALEVE CAPLET/TABLET,MIDOL EXTENDED RELIEF CAPLET [Suspect]
     Dosage: UNK UNK, PRN
     Route: 048
     Dates: start: 20120911

REACTIONS (1)
  - Accidental exposure to product by child [Recovered/Resolved]
